FAERS Safety Report 5613002-4 (Version None)
Quarter: 2008Q1

REPORT INFORMATION
  Report Type: 
  Country: None (occurrence: None)
  Receive Date: 20080204
  Receipt Date: 20080123
  Transmission Date: 20080703
  Serious: Yes (Other)
  Sender: FDA-Public Use
  Company Number: TR-RANBAXY-2008RR-12779

PATIENT

DRUGS (2)
  1. ISOTRETINOIN [Suspect]
     Dosage: 80 MG, QD
  2. ISOTRETINOIN [Suspect]
     Dosage: 40 MG, QD

REACTIONS (1)
  - OSTEOSCLEROSIS [None]
